FAERS Safety Report 19004251 (Version 1)
Quarter: 2021Q1

REPORT INFORMATION
  Report Type: Other
  Country: DE (occurrence: DE)
  Receive Date: 20210313
  Receipt Date: 20210313
  Transmission Date: 20210420
  Serious: Yes (Death, Hospitalization, Other)
  Sender: FDA-Public Use
  Company Number: DE-35507-2021-02828

PATIENT
  Age: 82 Year
  Sex: Female

DRUGS (8)
  1. BISOPROLOL [Concomitant]
     Active Substance: BISOPROLOL
     Indication: PRODUCT USED FOR UNKNOWN INDICATION
     Dosage: 2.5 MILLIGRAM, BID (1?0?1?0)
     Route: 048
  2. NALOXONE;TILIDINE [Concomitant]
     Active Substance: NALOXONE HYDROCHLORIDE\TILIDINE HYDROCHLORIDE
     Indication: PRODUCT USED FOR UNKNOWN INDICATION
     Dosage: UNK UNK, TID 4|50 MG, 1?1?1?0
     Route: 048
  3. LEVETIRACETAM TABLETS [Suspect]
     Active Substance: LEVETIRACETAM
     Indication: PRODUCT USED FOR UNKNOWN INDICATION
     Dosage: 1500 MILLIGRAM, BID  1?0?1?0
     Route: 048
  4. KOMBOGLYZE [Suspect]
     Active Substance: METFORMIN HYDROCHLORIDE\SAXAGLIPTIN
     Indication: PRODUCT USED FOR UNKNOWN INDICATION
     Dosage: 1000|2.5 MG, 1?0?1?0
     Route: 048
  5. ENOXAPARIN [Concomitant]
     Active Substance: ENOXAPARIN
     Indication: PRODUCT USED FOR UNKNOWN INDICATION
     Dosage: 4000 INTERNATIONAL UNIT, QD  1?0?0?0
     Route: 048
  6. ACETYLSALICYLIC ACID [Concomitant]
     Active Substance: ASPIRIN
     Indication: PRODUCT USED FOR UNKNOWN INDICATION
     Dosage: 100 MILLIGRAM, QD (0?1?0?0)
     Route: 048
  7. INSULIN LISPRO [Concomitant]
     Active Substance: INSULIN LISPRO
     Indication: PRODUCT USED FOR UNKNOWN INDICATION
     Dosage: 8?0?0?0
     Route: 058
  8. RAMIPRIL. [Concomitant]
     Active Substance: RAMIPRIL
     Indication: PRODUCT USED FOR UNKNOWN INDICATION
     Dosage: 2.5 MILLIGRAM, QD 1?0?0?0
     Route: 048

REACTIONS (5)
  - General physical health deterioration [Unknown]
  - Apnoea [Unknown]
  - Acute respiratory failure [Unknown]
  - Aspiration [Unknown]
  - Condition aggravated [Unknown]
